FAERS Safety Report 8948034 (Version 1)
Quarter: 2012Q4

REPORT INFORMATION
  Report Type: 
  Country: US (occurrence: US)
  Receive Date: 20121204
  Receipt Date: 20121204
  Transmission Date: 20130627
  Serious: No
  Sender: FDA-Public Use
  Company Number: US-ASTRAZENECA-2012SE24417

PATIENT
  Age: 74 Year
  Sex: Male
  Weight: 118.8 kg

DRUGS (1)
  1. NEXIUM [Suspect]
     Route: 048
     Dates: start: 2009

REACTIONS (4)
  - Diabetes mellitus [Unknown]
  - Prostatic disorder [Unknown]
  - Aphagia [Unknown]
  - Intentional drug misuse [Unknown]
